FAERS Safety Report 7322607-4 (Version None)
Quarter: 2011Q1

REPORT INFORMATION
  Report Type: 
  Country: None (occurrence: None)
  Receive Date: 20110301
  Receipt Date: 20110223
  Transmission Date: 20110831
  Serious: No
  Sender: FDA-Public Use
  Company Number: US-PFIZER INC-2010131039

PATIENT
  Sex: Male

DRUGS (3)
  1. XANAX [Concomitant]
     Indication: ANXIETY
  2. CHANTIX [Suspect]
     Indication: SMOKING CESSATION THERAPY
     Dosage: 1 MG, UNK
     Dates: start: 20080201, end: 20080501
  3. XANAX [Concomitant]
     Indication: DEPRESSION
     Dosage: UNK
     Dates: start: 20080201

REACTIONS (7)
  - MENTAL DISORDER [None]
  - EMOTIONAL DISTRESS [None]
  - DEPRESSION [None]
  - ANXIETY [None]
  - IMPAIRED DRIVING ABILITY [None]
  - ABNORMAL BEHAVIOUR [None]
  - AGGRESSION [None]
